FAERS Safety Report 22224148 (Version 3)
Quarter: 2024Q3

REPORT INFORMATION
  Report Type: Spontaneous
  Country: US (occurrence: US)
  Receive Date: 20230418
  Receipt Date: 20240728
  Transmission Date: 20241016
  Serious: No
  Sender: SUNOVION
  Company Number: US-UROVANT SCIENCES GMBH-202302-URV-000266

PATIENT
  Sex: Female
  Weight: 82.086 kg

DRUGS (14)
  1. GEMTESA [Suspect]
     Active Substance: VIBEGRON
     Dosage: 75 MG, QD
     Route: 048
  2. GEMTESA [Suspect]
     Active Substance: VIBEGRON
     Indication: Micturition urgency
  3. GEMTESA [Suspect]
     Active Substance: VIBEGRON
     Indication: Nocturia
  4. GEMTESA [Suspect]
     Active Substance: VIBEGRON
     Indication: Urge incontinence
  5. GEMTESA [Suspect]
     Active Substance: VIBEGRON
     Indication: Urinary incontinence
  6. ASTELIN                            /00085801/ [Concomitant]
     Indication: Product used for unknown indication
     Dosage: 137 MICROGRAM, BID, 2 DROPS EACH NOSTRIL
     Route: 045
  7. ASPIRIN [Concomitant]
     Active Substance: ASPIRIN
     Indication: Product used for unknown indication
     Dosage: 81 MG, QD
     Route: 048
  8. VITAMIN C [Concomitant]
     Active Substance: ASCORBIC ACID
     Indication: Product used for unknown indication
     Dosage: 250 MG, TID
     Route: 048
  9. CALTRATE 600+D [Concomitant]
     Indication: Product used for unknown indication
     Dosage: 600-400 MG UNIT, BID
     Route: 048
  10. SYSTANE (HYPROMELLOSE 2910 (4000 MPA.S)) [Concomitant]
     Active Substance: HYPROMELLOSE 2910 (4000 MPA.S)
     Indication: Product used for unknown indication
     Dosage: 0.4-0.3 % , ONE DROP TO BOTH EYES
     Route: 047
  11. CINNAMON\HERBALS [Concomitant]
     Active Substance: CINNAMON\HERBALS
     Indication: Product used for unknown indication
     Dosage: 500 MG, QD, CAPSULE
     Route: 048
  12. ACETAMINOPHEN [Concomitant]
     Active Substance: ACETAMINOPHEN
     Indication: Procedural pain
     Dosage: 500 MG, Q8H
     Route: 048
  13. NORVASC [Concomitant]
     Active Substance: AMLODIPINE BESYLATE
     Indication: Product used for unknown indication
     Dosage: 10 MG
     Route: 048
  14. MYRBETRIQ [Concomitant]
     Active Substance: MIRABEGRON
     Indication: Product used for unknown indication
     Dosage: 25 MG, QD, EXTENDED RELEASE 24 HOUR
     Route: 048

REACTIONS (2)
  - Illness [Unknown]
  - Hypertension [Unknown]
